FAERS Safety Report 24309369 (Version 2)
Quarter: 2024Q3

REPORT INFORMATION
  Report Type: Report from Study
  Country: NL (occurrence: NL)
  Receive Date: 20240911
  Receipt Date: 20240918
  Transmission Date: 20241017
  Serious: Yes (Hospitalization)
  Sender: ABBVIE
  Company Number: NL-ABBVIE-5905448

PATIENT
  Sex: Female

DRUGS (8)
  1. CARBIDOPA\LEVODOPA [Suspect]
     Active Substance: CARBIDOPA\LEVODOPA
     Indication: Parkinson^s disease
     Dosage: MD: 4.0 ML, CD: 1.6ML/H, ED: 1.50ML
     Route: 050
     Dates: start: 20231220
  2. CARBIDOPA\LEVODOPA [Suspect]
     Active Substance: CARBIDOPA\LEVODOPA
     Route: 050
  3. CARBIDOPA\LEVODOPA [Suspect]
     Active Substance: CARBIDOPA\LEVODOPA
     Dosage: DURATION TEXT: REMAINS AT 16 HOURS
     Route: 050
     Dates: start: 20191216
  4. CARBIDOPA\LEVODOPA [Suspect]
     Active Substance: CARBIDOPA\LEVODOPA
     Dosage: MD: 4.0 ML, CD: 1.6ML/H, ED: 1.50ML, DURATION TEXT: REMAINS AT 16 HOURS
     Route: 050
     Dates: start: 20230711, end: 20231220
  5. SYMMETREL [Concomitant]
     Active Substance: AMANTADINE HYDROCHLORIDE
     Indication: Dyskinesia
     Dosage: TIME INTERVAL: 0.33333333 DAYS
  6. POLYETHYLENE GLYCOLS [Concomitant]
     Active Substance: POLYETHYLENE GLYCOLS
     Indication: Product used for unknown indication
  7. PRAMIPEXOLE [Concomitant]
     Active Substance: PRAMIPEXOLE\PRAMIPEXOLE DIHYDROCHLORIDE
     Indication: Product used for unknown indication
     Dosage: DOSE: 1.5 MG, CONTROLLED RELEASE
  8. BENSERAZIDE HYDROCHLORIDE\LEVODOPA [Concomitant]
     Active Substance: BENSERAZIDE HYDROCHLORIDE\LEVODOPA
     Indication: Product used for unknown indication

REACTIONS (16)
  - Loss of personal independence in daily activities [Not Recovered/Not Resolved]
  - Device issue [Not Recovered/Not Resolved]
  - COVID-19 [Not Recovered/Not Resolved]
  - Cognitive disorder [Not Recovered/Not Resolved]
  - Fall [Recovered/Resolved]
  - Urinary tract infection [Not Recovered/Not Resolved]
  - General physical health deterioration [Not Recovered/Not Resolved]
  - Weight decreased [Not Recovered/Not Resolved]
  - Anosognosia [Not Recovered/Not Resolved]
  - Emotional distress [Not Recovered/Not Resolved]
  - Parkinson^s disease [Not Recovered/Not Resolved]
  - Device colour issue [Unknown]
  - Dysstasia [Not Recovered/Not Resolved]
  - Device dislocation [Unknown]
  - On and off phenomenon [Not Recovered/Not Resolved]
  - Device physical property issue [Unknown]
